FAERS Safety Report 12590629 (Version 1)
Quarter: 2016Q3

REPORT INFORMATION
  Report Type: Spontaneous
  Country: IN (occurrence: IN)
  Receive Date: 20160726
  Receipt Date: 20160726
  Transmission Date: 20161109
  Serious: No
  Sender: FDA-Public Use
  Company Number: IN-LUPIN PHARMACEUTICALS INC.-E2B_00004967

PATIENT
  Sex: 0

DRUGS (1)
  1. L-CIN [Suspect]
     Active Substance: LEVOFLOXACIN
     Indication: PRODUCT USED FOR UNKNOWN INDICATION
     Route: 042

REACTIONS (3)
  - Restlessness [Not Recovered/Not Resolved]
  - Vomiting [Not Recovered/Not Resolved]
  - Rash generalised [Not Recovered/Not Resolved]
